FAERS Safety Report 9564809 (Version 1)
Quarter: 2013Q3

REPORT INFORMATION
  Report Type: Report from Study
  Country: MX (occurrence: MX)
  Receive Date: 20130930
  Receipt Date: 20130930
  Transmission Date: 20140515
  Serious: Yes (Death)
  Sender: FDA-Public Use
  Company Number: PHHY2013MX108511

PATIENT
  Sex: 0

DRUGS (1)
  1. AFINITOR [Suspect]

REACTIONS (1)
  - Toxicity to various agents [Fatal]
